FAERS Safety Report 6364327-9 (Version None)
Quarter: 2009Q3

REPORT INFORMATION
  Report Type: 
  Country: None (occurrence: None)
  Receive Date: 20090919
  Receipt Date: 20090722
  Transmission Date: 20100115
  Serious: Yes (Other)
  Sender: FDA-Public Use
  Company Number: US-ABBOTT-09P-163-0586731-00

PATIENT
  Sex: Female
  Weight: 58.566 kg

DRUGS (11)
  1. HUMIRA [Suspect]
     Indication: ANKYLOSING SPONDYLITIS
     Route: 050
     Dates: start: 20090301, end: 20090702
  2. CYMBALTA [Concomitant]
     Indication: DEPRESSION
     Route: 048
     Dates: start: 20090702
  3. CYMBALTA [Concomitant]
     Indication: ANXIETY
  4. VITAMIN TAB [Concomitant]
     Indication: DRUG USE FOR UNKNOWN INDICATION
     Route: 048
     Dates: start: 20090401
  5. YAZ [Concomitant]
     Indication: CONTRACEPTION
     Route: 048
     Dates: start: 20090207, end: 20090309
  6. KEFLEX [Concomitant]
     Indication: STAPHYLOCOCCAL INFECTION
     Route: 048
     Dates: start: 20070713
  7. ROCEPHIN [Concomitant]
     Indication: STAPHYLOCOCCAL INFECTION
     Route: 050
     Dates: start: 20090713, end: 20090713
  8. IBUPROFEN [Concomitant]
     Indication: HEADACHE
     Route: 048
     Dates: start: 20090207
  9. IBUPROFEN [Concomitant]
     Indication: BACK PAIN
  10. TYLENOL (CAPLET) [Concomitant]
     Indication: HEADACHE
     Route: 048
     Dates: start: 20090207
  11. DOCUSATE [Concomitant]
     Indication: CONSTIPATION PROPHYLAXIS
     Route: 048
     Dates: start: 20090415

REACTIONS (1)
  - STAPHYLOCOCCAL INFECTION [None]
